FAERS Safety Report 9843865 (Version 1)
Quarter: 2013Q4

REPORT INFORMATION
  Report Type: Spontaneous
  Country: US (occurrence: None)
  Receive Date: 20131223
  Receipt Date: 20131223
  Transmission Date: 20140711
  Serious: No
  Sender: FDA-Public Use
  Company Number: 1000051777

PATIENT
  Age: 63 Year
  Sex: Male

DRUGS (10)
  1. LINZESS (LINACLOTIDE) (145 MICROGRAM, CAPSULES) [Suspect]
     Indication: CONSTIPATION
     Route: 048
     Dates: start: 201310
  2. RANEXA (RANOLAZINE) (RANOLAZINE) [Concomitant]
  3. DEXILANT (DEXLANSOPRAZOLE) (DEXLANSOPRAZOLE) [Concomitant]
  4. CRESTOR (ROSUVASTATIN CALCIUM) (ROSUVASTATIN CALCIUM) [Concomitant]
  5. LOSARTAN (LOSARTAN) (LOSARTAN) [Concomitant]
  6. AMLODIPINE (AMLODIPINE) (AMLODIPINE) [Concomitant]
  7. FUROSEMIDE (FUROSEMIDE) (FUROSEMIDE) [Concomitant]
  8. MVI (VITAMINS NOS) (VITAMINS NOS) [Concomitant]
  9. VIT D (ERGOCALCIFEROL) (ERGOCALCIFEROL) [Concomitant]
  10. STOOL SOFTENER (DOCUSATE SODIUM) (DOCUSATE SODIUM) [Concomitant]

REACTIONS (2)
  - Constipation [None]
  - Drug ineffective [None]
